FAERS Safety Report 6148468-7 (Version None)
Quarter: 2009Q2

REPORT INFORMATION
  Report Type: 
  Country: None (occurrence: None)
  Receive Date: 20090408
  Receipt Date: 20090401
  Transmission Date: 20091009
  Serious: Yes (Hospitalization)
  Sender: FDA-Public Use
  Company Number: NL-TEVA-190289ISR

PATIENT
  Sex: Female

DRUGS (3)
  1. DOXYCYCLINE [Suspect]
     Dates: start: 20080101
  2. AMOXICILLIN [Suspect]
     Dates: start: 20081128
  3. PHENYTOIN SODIUM [Suspect]
     Indication: EPILEPSY
     Dates: start: 20081110

REACTIONS (2)
  - DRUG INTERACTION [None]
  - DRUG TOXICITY [None]
